FAERS Safety Report 10459051 (Version 3)
Quarter: 2014Q4

REPORT INFORMATION
  Report Type: Spontaneous
  Country: CH (occurrence: CH)
  Receive Date: 20140917
  Receipt Date: 20141222
  Transmission Date: 20150528
  Serious: Yes (Life-Threatening)
  Sender: FDA-Public Use
  Company Number: CH-AMGEN-CHESP2014070128

PATIENT
  Age: 36 Year
  Sex: Male
  Weight: 67.5 kg

DRUGS (43)
  1. FLUIMUCIL [Concomitant]
     Active Substance: ACETYLCYSTEINE
     Indication: LUNG TRANSPLANT
     Dosage: UNK UNK, TID
     Route: 048
  2. DILZEM-RR [Concomitant]
     Indication: HYPERTENSION
     Dosage: 90 MG, QD
     Route: 048
  3. RESOURCE OPTIFIBRE [Concomitant]
     Indication: PANCREATIC INSUFFICIENCY
     Dosage: 1 ML, QD
     Route: 048
  4. GASTROGRAFIN [Concomitant]
     Active Substance: DIATRIZOATE MEGLUMINE\DIATRIZOATE SODIUM
     Indication: CONSTIPATION
     Dosage: 50 ML, Q2WK
     Route: 054
  5. RENAGEL [Concomitant]
     Active Substance: SEVELAMER HYDROCHLORIDE
     Indication: DIALYSIS
     Dosage: 800 MG, TWO TABLETS TID
     Route: 048
  6. NOVALGIN [Concomitant]
     Active Substance: METAMIZOLE SODIUM
     Indication: PAIN
     Dosage: 500 MG, QD
     Route: 048
  7. MERONEM [Suspect]
     Active Substance: MEROPENEM
     Indication: FURUNCLE
     Dosage: 1 G, 3 TIMES/WK
     Route: 042
     Dates: start: 20131031
  8. BELOC-ZOK COMP [Concomitant]
     Active Substance: HYDROCHLOROTHIAZIDE\METOPROLOL SUCCINATE
     Indication: HYPERTENSION
     Dosage: 25 MG, BID
     Route: 048
  9. MOTILIUM [Concomitant]
     Active Substance: DOMPERIDONE
     Indication: CONSTIPATION
     Dosage: 10 MG, TID
     Route: 048
  10. EPREX [Suspect]
     Active Substance: ERYTHROPOIETIN
     Indication: PRODUCT USED FOR UNKNOWN INDICATION
     Dosage: 4000 UNIT, 3 TIMES/WK
     Route: 042
     Dates: start: 20120108
  11. CARDURA CR [Concomitant]
     Active Substance: DOXAZOSIN MESYLATE
     Indication: HYPERTENSION
     Dosage: 40 MG, BID
     Route: 048
  12. ELTROXIN [Concomitant]
     Active Substance: LEVOTHYROXINE
     Indication: HYPOTHYROIDISM
     Dosage: 0.1 MG,1.5 TBT/D
     Route: 048
  13. TARGOCID [Suspect]
     Active Substance: TEICOPLANIN
     Indication: FURUNCLE
     Dosage: 100 MG, 1 INJECTION 2 TIMES/WK
     Route: 042
     Dates: start: 20131101
  14. CELLCEPT [Suspect]
     Active Substance: MYCOPHENOLATE MOFETIL\MYCOPHENOLATE MOFETIL HYDROCHLORIDE
     Indication: LUNG TRANSPLANT
     Dosage: 250 MG, 6 TABLETS BID
     Route: 048
     Dates: start: 2005
  15. TOREM                              /01036501/ [Concomitant]
     Active Substance: TORSEMIDE
     Indication: HYPERTENSION
     Dosage: 200 MG, QD
     Route: 048
  16. TRANSIPEG                          /00754501/ [Concomitant]
     Active Substance: POLYETHYLENE GLYCOL 3350
     Indication: CONSTIPATION
     Dosage: UNK UNK, TWO TABLETS TID
     Route: 048
  17. PASPERTIN                          /00041902/ [Concomitant]
     Active Substance: METOCLOPRAMIDE HYDROCHLORIDE
     Indication: DIALYSIS
     Dosage: 10 MG, Q3WK
     Route: 042
  18. DIALVIT [Concomitant]
     Indication: DIALYSIS
     Dosage: 1 TBL, Q3WK
     Route: 048
  19. BONVIVA [Concomitant]
     Active Substance: IBANDRONATE SODIUM
     Indication: OSTEOPOROSIS
     Dosage: 3 MG, Q3MO
     Route: 042
  20. SANDIMMUNE [Suspect]
     Active Substance: CYCLOSPORINE
     Indication: LUNG TRANSPLANT
     Dosage: 140 MG, BID
     Route: 048
     Dates: start: 2005
  21. VENOFER [Concomitant]
     Active Substance: IRON SUCROSE
     Indication: DIALYSIS
     Dosage: 100 MG, 2X/MONTH
     Route: 042
  22. ZESTRIL [Concomitant]
     Active Substance: LISINOPRIL
     Indication: HYPERTENSION
     Dosage: 10 MG, BID
     Route: 048
  23. SELIPRAN [Concomitant]
     Active Substance: PRAVASTATIN SODIUM
     Indication: BLOOD CHOLESTEROL
     Dosage: 20 MG, QD
     Route: 048
  24. ESOMEP                             /00661201/ [Concomitant]
     Indication: ABDOMINAL PAIN UPPER
     Dosage: 20 MG, BID
     Route: 048
  25. DAFALGAN [Concomitant]
     Active Substance: ACETAMINOPHEN
     Indication: HEADACHE
     Dosage: 1 G, QD
     Route: 048
  26. MYCOPHENOLATE MOFETIL. [Concomitant]
     Active Substance: MYCOPHENOLATE MOFETIL
     Dosage: UNK
  27. CYCLOSPORIN A [Concomitant]
     Active Substance: CYCLOSPORINE
     Dosage: UNK
  28. MAGNESIOCARD [Concomitant]
     Active Substance: MAGNESIUM ASPARTATE HYDROCHLORIDE
     Indication: MUSCLE SPASMS
     Dosage: 10 MMOL, BID
     Route: 048
  29. SUPRADYN                           /01742801/ [Concomitant]
     Indication: DIALYSIS
     Dosage: UNK UNK, QD
     Route: 048
  30. ENSURE [Concomitant]
     Active Substance: AMINO ACIDS\DEXTROSE\ELECTROLYTES NOS\SOYBEAN OIL\VITAMINS
     Indication: PANCREATIC INSUFFICIENCY
     Dosage: 200 ML, 3 PER DAY
     Route: 048
  31. ARANESP [Suspect]
     Active Substance: DARBEPOETIN ALFA
     Indication: DIALYSIS
  32. VALTREX [Suspect]
     Active Substance: VALACYCLOVIR HYDROCHLORIDE
     Indication: LUNG TRANSPLANT
     Dosage: 500 MG, QD
     Route: 048
  33. FUNGIZONE [Suspect]
     Active Substance: AMPHOTERICIN B
     Indication: LUNG TRANSPLANT
     Dosage: 5 MG, BID
     Route: 048
  34. ZITHROMAX [Concomitant]
     Active Substance: AZITHROMYCIN DIHYDRATE
     Indication: LUNG TRANSPLANT
     Dosage: 250 MG, Q3WK
     Route: 048
  35. PREDNISON [Concomitant]
     Active Substance: PREDNISONE
     Indication: LUNG TRANSPLANT
     Dosage: 5 MG, 1.5 TABLET QD
     Route: 048
     Dates: start: 2005
  36. SPORANOX [Concomitant]
     Active Substance: ITRACONAZOLE\SODIUM CHLORIDE
     Indication: LUNG TRANSPLANT
     Dosage: 100 MG KPS , BID
  37. URSOCHOL [Concomitant]
     Indication: PANCREATIC INSUFFICIENCY
     Dosage: 300 MG, BID
     Route: 048
  38. RESONIUM [Concomitant]
     Active Substance: SODIUM POLYSTYRENE SULFONATE
     Indication: DIALYSIS
     Dosage: 1 SPOON, Q3WK
     Route: 048
  39. ARANESP [Suspect]
     Active Substance: DARBEPOETIN ALFA
     Indication: HAEMOGLOBIN DECREASED
     Dosage: UNK
     Route: 065
  40. BACTRIM [Suspect]
     Active Substance: SULFAMETHOXAZOLE\TRIMETHOPRIM
     Indication: LUNG TRANSPLANT
     Dosage: UNK UNK, 1/2 TABLET 3 TIMES/WK
     Route: 048
  41. COLISTIN [Concomitant]
     Active Substance: COLISTIN
     Indication: LUNG TRANSPLANT
     Dosage: 1 MIO U, BID, INHALER
  42. CREON [Concomitant]
     Active Substance: PANCRELIPASE AMYLASE\PANCRELIPASE LIPASE\PANCRELIPASE PROTEASE
     Indication: PANCREATIC INSUFFICIENCY
     Dosage: 25000 UNK, AS NECESSARY
     Route: 048
  43. ROCALTROL [Concomitant]
     Active Substance: CALCITRIOL
     Indication: DIALYSIS
     Dosage: 0.25 MUG, 3 TIMES/WK
     Route: 048

REACTIONS (2)
  - Haemoglobin decreased [Not Recovered/Not Resolved]
  - Drug ineffective [Unknown]

NARRATIVE: CASE EVENT DATE: 20131209
